FAERS Safety Report 7528140-9 (Version None)
Quarter: 2011Q2

REPORT INFORMATION
  Report Type: 
  Country: None (occurrence: None)
  Receive Date: 20110607
  Receipt Date: 20100817
  Transmission Date: 20111010
  Serious: No
  Sender: FDA-Public Use
  Company Number: US-ASTRAZENECA-2010SE38671

PATIENT
  Age: 66 Year

DRUGS (1)
  1. PRILOSEC [Suspect]
     Route: 048

REACTIONS (10)
  - BALANCE DISORDER [None]
  - FALL [None]
  - BACK PAIN [None]
  - ARTHRALGIA [None]
  - BONE PAIN [None]
  - DIZZINESS [None]
  - MUSCULAR WEAKNESS [None]
  - DYSPHAGIA [None]
  - MUSCLE SPASMS [None]
  - CONSTIPATION [None]
